FAERS Safety Report 9185104 (Version 1)
Quarter: 2012Q4

REPORT INFORMATION
  Report Type: 
  Country: SE (occurrence: SE)
  Receive Date: 20121101
  Receipt Date: 20121101
  Transmission Date: 20130627
  Serious: Yes (Hospitalization)
  Sender: FDA-Public Use
  Company Number: SE-PFIZER INC-2012269047

PATIENT
  Age: 63 Year
  Sex: Male
  Weight: 89.2 kg

DRUGS (5)
  1. GENOTROPIN [Suspect]
     Dosage: 0.2 mg, 1x/day, 7inj/wk
     Route: 058
     Dates: start: 20090916
  2. BEHEPAN [Concomitant]
     Indication: VITAMIN B12 DECREASED
     Dosage: UNK
     Dates: start: 20010101
  3. LOSEC MUPS [Concomitant]
     Indication: GASTRITIS
     Dosage: UNK
     Dates: start: 20010101
  4. LEVAXIN [Concomitant]
     Indication: BLOOD THYROID STIMULATING HORMONE DECREASED
     Dosage: UNK
     Dates: start: 20010101
  5. LEVAXIN [Concomitant]
     Indication: PRIMARY HYPOTHYROIDISM

REACTIONS (1)
  - Dizziness [Unknown]
